FAERS Safety Report 18261218 (Version 2)
Quarter: 2020Q3

REPORT INFORMATION
  Report Type: Spontaneous
  Country: US (occurrence: US)
  Receive Date: 20200914
  Receipt Date: 20200918
  Transmission Date: 20201103
  Serious: No
  Sender: FDA-Public Use
  Company Number: US-HORIZON-TEP-1870-2020

PATIENT
  Age: 80 Year
  Sex: Female

DRUGS (1)
  1. TEPEZZA [Suspect]
     Active Substance: TEPROTUMUMAB-TRBW
     Indication: PRODUCT USED FOR UNKNOWN INDICATION
     Dosage: 1440 MG (30.3ML) EVERY 3 WEEKS
     Route: 042

REACTIONS (3)
  - Blood glucose abnormal [Unknown]
  - Malaise [Unknown]
  - Unevaluable event [Unknown]
